FAERS Safety Report 18024685 (Version 1)
Quarter: 2020Q3

REPORT INFORMATION
  Report Type: Spontaneous
  Country: US (occurrence: US)
  Receive Date: 20200714
  Receipt Date: 20200714
  Transmission Date: 20201103
  Serious: Yes (Hospitalization)
  Sender: FDA-Public Use
  Company Number: None

PATIENT
  Age: 37 Year
  Sex: Male
  Weight: 65 kg

DRUGS (1)
  1. MELOXICAM (MELOXICAM 15MG TAB) [Suspect]
     Active Substance: MELOXICAM

REACTIONS (4)
  - Gastrointestinal haemorrhage [None]
  - Duodenal ulcer [None]
  - Gastric ulcer [None]
  - Oesophageal ulcer [None]

NARRATIVE: CASE EVENT DATE: 20200112
